FAERS Safety Report 9284918 (Version 1)
Quarter: 2013Q2

REPORT INFORMATION
  Report Type: Spontaneous
  Country: GB (occurrence: GB)
  Receive Date: 20130513
  Receipt Date: 20130513
  Transmission Date: 20140414
  Serious: Yes (Hospitalization)
  Sender: FDA-Public Use
  Company Number: GB-PFIZER INC-2005011688

PATIENT
  Age: 67 Year
  Sex: Male

DRUGS (7)
  1. IBUPROFEN [Suspect]
     Dosage: UNSPECIFIED
     Route: 065
     Dates: start: 2004, end: 2004
  2. CLOPIDOGREL SULFATE [Suspect]
     Indication: MYOCARDIAL INFARCTION
     Dosage: 75 MG QD
     Route: 048
     Dates: start: 200311, end: 200412
  3. ASPIRIN [Suspect]
     Indication: MYOCARDIAL INFARCTION
     Dosage: 75 MG QD
     Route: 048
     Dates: start: 200311, end: 200412
  4. RAMIPRIL [Concomitant]
     Indication: MYOCARDIAL INFARCTION
     Dosage: 10 MG QD
     Route: 048
     Dates: start: 200311
  5. ATENOLOL [Concomitant]
     Indication: MYOCARDIAL INFARCTION
     Dosage: 50 MG QD
     Route: 048
     Dates: start: 200311
  6. BENDROFLUAZIDE [Concomitant]
     Indication: BLOOD PRESSURE INCREASED
     Dosage: 2.5 MG QD
     Route: 048
     Dates: start: 200311
  7. PRAVASTATIN [Concomitant]
     Indication: MYOCARDIAL INFARCTION
     Dosage: 40 MG, UNK
     Route: 048
     Dates: start: 200311

REACTIONS (5)
  - Gastric ulcer [Recovering/Resolving]
  - Dizziness [Recovering/Resolving]
  - Haematemesis [Recovering/Resolving]
  - Diarrhoea [Recovering/Resolving]
  - Faeces discoloured [Recovering/Resolving]
